FAERS Safety Report 24061534 (Version 1)
Quarter: 2024Q3

REPORT INFORMATION
  Report Type: Spontaneous
  Country: GB (occurrence: GB)
  Receive Date: 20240708
  Receipt Date: 20240708
  Transmission Date: 20241017
  Serious: Yes (Other)
  Sender: MYLAN
  Company Number: GB-MHRA-TPP39712117C9607328YC1719559419971

PATIENT
  Age: 33 Year
  Sex: Female
  Weight: 80 kg

DRUGS (8)
  1. ATORVASTATIN [Suspect]
     Active Substance: ATORVASTATIN
     Indication: Blood cholesterol increased
     Dosage: 20 MILLIGRAM, QD
     Route: 065
     Dates: start: 20240327, end: 20240510
  2. CYANOCOBALAMIN [Concomitant]
     Active Substance: CYANOCOBALAMIN
     Dosage: ONE - THREE TABLETS TO BE TAKEN DAILY
     Route: 065
     Dates: start: 20220601
  3. CHOLECALCIFEROL [Concomitant]
     Active Substance: CHOLECALCIFEROL
     Dosage: 1 DOSAGE FORM, QD
     Route: 065
     Dates: start: 20230215
  4. FLUOXETINE [Concomitant]
     Active Substance: FLUOXETINE HYDROCHLORIDE
     Dosage: 5 MILLILITER, QD (SPOONFUL)
     Route: 065
     Dates: start: 20230503
  5. NORGESTON [Concomitant]
     Dosage: 1 DOSAGE FORM (MINI PILL - TAKE ONE TABLET AT THE SAME TIME EV.)
     Route: 065
     Dates: start: 20230809
  6. FEXOFENADINE [Concomitant]
     Active Substance: FEXOFENADINE HYDROCHLORIDE
     Dosage: 1 DOSAGE FORM, QD (BEFORE BEDTIM..)
     Route: 065
     Dates: start: 20231010
  7. MEBEVERINE HYDROCHLORIDE [Concomitant]
     Active Substance: MEBEVERINE HYDROCHLORIDE
     Dosage: 1 DOSAGE FORM, Q3D (DOSE..)
     Route: 065
     Dates: start: 20231031
  8. EZETIMIBE [Concomitant]
     Active Substance: EZETIMIBE
     Indication: Blood cholesterol increased
     Dosage: 1 DOSAGE FORM, PM (AT NIGHT)
     Route: 065
     Dates: start: 20240628

REACTIONS (2)
  - Neuropathy peripheral [Recovered/Resolved]
  - Musculoskeletal disorder [Unknown]

NARRATIVE: CASE EVENT DATE: 20240101
